FAERS Safety Report 16506699 (Version 1)
Quarter: 2019Q3

REPORT INFORMATION
  Report Type: Spontaneous
  Country: US (occurrence: US)
  Receive Date: 20190701
  Receipt Date: 20190701
  Transmission Date: 20191004
  Serious: No
  Sender: FDA-Public Use
  Company Number: US-AMREGENT-20190625

PATIENT
  Age: 28 Year
  Sex: Female

DRUGS (2)
  1. HYDROXYPROGESTERONE CAPROATE  INJECTION, USP (0517-1767-01) [Suspect]
     Active Substance: HYDROXYPROGESTERONE CAPROATE
     Dosage: 1 ML; FOR THREE CYCLES
     Route: 030
     Dates: start: 20190208
  2. PRENATAL + DHA [Concomitant]
     Dosage: UNKNOWN
     Route: 048

REACTIONS (3)
  - Vulvovaginal pain [Not Recovered/Not Resolved]
  - Vulvovaginal discomfort [Not Recovered/Not Resolved]
  - Vulvovaginal erythema [Not Recovered/Not Resolved]

NARRATIVE: CASE EVENT DATE: 20190209
